FAERS Safety Report 8274906-X (Version None)
Quarter: 2012Q2

REPORT INFORMATION
  Report Type: 
  Country: None (occurrence: None)
  Receive Date: 20120409
  Receipt Date: 20120326
  Transmission Date: 20120825
  Serious: Yes (Hospitalization)
  Sender: FDA-Public Use
  Company Number: GER/UKI/12/0023738

PATIENT
  Age: 72 Year
  Sex: Male

DRUGS (2)
  1. LEVETIRACETAM [Suspect]
     Indication: EPILEPSY
     Dosage: 250 MG, 2 IN 1 D
  2. LEVETIRACETAM [Suspect]
     Indication: CEREBROVASCULAR ACCIDENT
     Dosage: 250 MG, 2 IN 1 D

REACTIONS (7)
  - DEPRESSION [None]
  - MOBILITY DECREASED [None]
  - PSYCHOTIC DISORDER [None]
  - SOMNOLENCE [None]
  - DELIRIUM [None]
  - INCONTINENCE [None]
  - ASTHENIA [None]
